FAERS Safety Report 5884428-9 (Version None)
Quarter: 2008Q3

REPORT INFORMATION
  Report Type: 
  Country: None (occurrence: None)
  Receive Date: 20080915
  Receipt Date: 20080903
  Transmission Date: 20090109
  Serious: Yes (Life-Threatening, Hospitalization, Other)
  Sender: FDA-Public Use
  Company Number: JP-PFIZER INC-2008074735

PATIENT
  Sex: Male

DRUGS (2)
  1. CHANTIX [Suspect]
     Indication: SMOKING CESSATION THERAPY
     Route: 048
     Dates: start: 20080515, end: 20080601
  2. RABEPRAZOLE SODIUM [Concomitant]
     Route: 048

REACTIONS (12)
  - BACK PAIN [None]
  - DEPRESSION [None]
  - DISTURBANCE IN ATTENTION [None]
  - HEADACHE [None]
  - MENTAL DISORDER [None]
  - MIDDLE INSOMNIA [None]
  - MUSCULAR WEAKNESS [None]
  - NAUSEA [None]
  - NECK PAIN [None]
  - OBSESSIVE THOUGHTS [None]
  - PAROSMIA [None]
  - SLEEP DISORDER [None]
